FAERS Safety Report 8196881-9 (Version None)
Quarter: 2012Q1

REPORT INFORMATION
  Report Type: 
  Country: None (occurrence: None)
  Receive Date: 20120309
  Receipt Date: 20120302
  Transmission Date: 20120608
  Serious: Yes (Life-Threatening)
  Sender: FDA-Public Use
  Company Number: US-BAYER-2012-022207

PATIENT
  Sex: Female

DRUGS (3)
  1. YAZ [Suspect]
     Route: 048
  2. YASMIN [Suspect]
     Route: 048
  3. DROSPIRENONE AND ETHINYL ESTRADIOL [Suspect]
     Route: 048

REACTIONS (5)
  - DEEP VEIN THROMBOSIS [None]
  - GENERAL PHYSICAL HEALTH DETERIORATION [None]
  - ANHEDONIA [None]
  - ANXIETY [None]
  - PAIN [None]
